FAERS Safety Report 5676739-7 (Version None)
Quarter: 2008Q1

REPORT INFORMATION
  Report Type: 
  Country: None (occurrence: None)
  Receive Date: 20080318
  Receipt Date: 20080312
  Transmission Date: 20080703
  Serious: Yes (Death)
  Sender: FDA-Public Use
  Company Number: TCI2008A00910

PATIENT
  Age: 79 Year
  Sex: Male
  Weight: 68.6 kg

DRUGS (1)
  1. LEUPROLIDE ACETATE [Suspect]
     Indication: PROSTATE CANCER STAGE II
     Dosage: 11.25 MG (11.25 MG,1 IN 12 WK)
     Route: 058
     Dates: start: 20070420, end: 20070420

REACTIONS (1)
  - PNEUMONIA [None]
